FAERS Safety Report 9442174 (Version 1)
Quarter: 2013Q3

REPORT INFORMATION
  Report Type: Spontaneous
  Country: US (occurrence: None)
  Receive Date: 20130805
  Receipt Date: 20130805
  Transmission Date: 20140515
  Serious: No
  Sender: FDA-Public Use
  Company Number: None

PATIENT
  Age: 43 Year
  Sex: Male
  Weight: 111.13 kg

DRUGS (13)
  1. LASTACAFT [Suspect]
     Indication: CONJUNCTIVITIS ALLERGIC
     Dosage: 0.25%?1X3ML BOTTLE?ONCE DAILY?EYE DROP
     Dates: start: 20121107, end: 20130730
  2. ZOCOR [Concomitant]
  3. ZETONNA [Concomitant]
  4. XYZAL [Concomitant]
  5. SINGULAIR [Concomitant]
  6. PEPCID [Concomitant]
  7. MOBIC [Concomitant]
  8. PATADAY [Concomitant]
  9. NAPHCON-A [Concomitant]
  10. MVI DAILY [Concomitant]
  11. ARTIFICIAL TEARS [Concomitant]
  12. STERILE EYE WASH [Concomitant]
  13. NAPHCON-A [Concomitant]

REACTIONS (6)
  - Ocular hyperaemia [None]
  - Eye swelling [None]
  - Conjunctivitis allergic [None]
  - Lacrimation increased [None]
  - Scab [None]
  - Disease recurrence [None]
